FAERS Safety Report 17827109 (Version 1)
Quarter: 2020Q2

REPORT INFORMATION
  Report Type: Other
  Country: AT (occurrence: AT)
  Receive Date: 20200527
  Receipt Date: 20200527
  Transmission Date: 20200714
  Serious: Yes (Other)
  Sender: FDA-Public Use
  Company Number: AT-CELLTRION INC.-2020AT022577

PATIENT

DRUGS (9)
  1. OLEOVIT [DEXPANTHENOL;RETINOL] [Concomitant]
     Dosage: ONGOING = CHECKED
     Dates: start: 20181108
  2. TRASTUZUMAB (UNKNOWN) [Suspect]
     Active Substance: TRASTUZUMAB
     Indication: BREAST CANCER
     Dosage: 330 MG EVERY 3 WEEKS (MOST RECENT DOSE PRIOR TO THE EVENT: 13/NOV/2018)
     Route: 041
     Dates: start: 20181113, end: 20190918
  3. EXEMESTANE. [Suspect]
     Active Substance: EXEMESTANE
     Indication: BREAST CANCER
     Dosage: 25 MG (FREQUENCY: O.D. - ONCE DAILY)
     Route: 048
     Dates: start: 20181108
  4. PERTUZUMAB. [Suspect]
     Active Substance: PERTUZUMAB
     Indication: BREAST CANCER
  5. PREGABALIN. [Concomitant]
     Active Substance: PREGABALIN
     Dosage: ONGOING = CHECKED
  6. PSYCHOPAX [Concomitant]
     Active Substance: DIAZEPAM
     Dosage: ONGOING = CHECKED
     Dates: start: 20181108
  7. PACLITAXEL. [Suspect]
     Active Substance: PACLITAXEL
     Indication: BREAST CANCER
     Dosage: 199 MG (WEEKLY; MOST RECENT DOSE WAS RECEIVED ON 15/MAY/2019)
     Route: 042
     Dates: start: 20181205, end: 20190515
  8. PERTUZUMAB. [Suspect]
     Active Substance: PERTUZUMAB
     Indication: HER2 POSITIVE BREAST CANCER
     Dosage: 420 MG EVERY 3 WEEKS (MOST RECENT DOSE PRIOR TO THE EVENT: 13/NOV/2018)
     Route: 042
     Dates: start: 20181113, end: 20190918
  9. PANTOPRAZOLE [Concomitant]
     Active Substance: PANTOPRAZOLE
     Indication: BREAST CANCER
     Dosage: ONGOING = CHECKED
     Dates: start: 20181108

REACTIONS (3)
  - Polyneuropathy [Recovered/Resolved]
  - Stomatitis [Recovered/Resolved]
  - Arthralgia [Recovered/Resolved]

NARRATIVE: CASE EVENT DATE: 20181207
